FAERS Safety Report 7741578-X (Version None)
Quarter: 2011Q3

REPORT INFORMATION
  Report Type: 
  Country: None (occurrence: None)
  Receive Date: 20110909
  Receipt Date: 20110831
  Transmission Date: 20111222
  Serious: Yes (Hospitalization)
  Sender: FDA-Public Use
  Company Number: JP-ASTRAZENECA-2011SE42768

PATIENT
  Age: 30127 Day
  Sex: Female
  Weight: 38 kg

DRUGS (13)
  1. TAIPROTON [Suspect]
     Indication: GASTROOESOPHAGEAL REFLUX DISEASE
     Route: 048
     Dates: start: 20100629, end: 20110714
  2. PRAVASTATIN SODIUM [Concomitant]
     Indication: HYPERLIPIDAEMIA
     Route: 048
     Dates: start: 20110301, end: 20110711
  3. ARGAMATE [Concomitant]
     Indication: HYPERKALAEMIA
     Route: 048
     Dates: start: 20110608, end: 20110711
  4. ASPIRIN [Concomitant]
     Indication: MYOCARDIAL INFARCTION
     Route: 048
     Dates: start: 20080219, end: 20110719
  5. CARVEDILOL [Concomitant]
     Indication: CARDIAC FAILURE
     Route: 048
     Dates: start: 20110330, end: 20110711
  6. VERAPAMIL HCL [Concomitant]
     Indication: ATRIAL FIBRILLATION
     Route: 048
     Dates: start: 20110401
  7. ARGAMATE [Concomitant]
     Route: 048
     Dates: start: 20110715
  8. CANDESARTAN CILEXETIL [Suspect]
     Indication: CARDIAC FAILURE
     Route: 048
     Dates: start: 20110401, end: 20110714
  9. WARFARIN SODIUM [Concomitant]
     Indication: ATRIAL FIBRILLATION
     Route: 048
     Dates: start: 20110331
  10. GLIMEPIRIDE TCK [Concomitant]
     Indication: DIABETES MELLITUS
     Route: 048
     Dates: start: 20110415
  11. MAGNESIUM OXIDE [Concomitant]
     Indication: CONSTIPATION
     Route: 048
     Dates: start: 20080312
  12. CARVEDILOL [Concomitant]
     Route: 048
     Dates: start: 20110712
  13. UBRETID [Concomitant]
     Indication: NEUROGENIC BLADDER
     Route: 048
     Dates: start: 20080320

REACTIONS (1)
  - INTERSTITIAL LUNG DISEASE [None]
